FAERS Safety Report 23203187 (Version 1)
Quarter: 2023Q4

REPORT INFORMATION
  Report Type: Spontaneous
  Country: US (occurrence: None)
  Receive Date: 20231119
  Receipt Date: 20231119
  Transmission Date: 20240109
  Serious: Yes (Hospitalization, Disabling)
  Sender: FDA-Public Use
  Company Number: None

PATIENT
  Age: 64 Year
  Sex: Male
  Weight: 69 kg

DRUGS (7)
  1. PREVYMIS [Suspect]
     Active Substance: LETERMOVIR
     Indication: Stem cell transplant
     Dosage: OTHER QUANTITY : 1 TABLET(S);?FREQUENCY : DAILY;?
     Route: 048
     Dates: start: 20230920
  2. PREVYMIS [Suspect]
     Active Substance: LETERMOVIR
     Indication: Antiviral prophylaxis
  3. TACROLIMUS [Concomitant]
     Active Substance: TACROLIMUS
  4. URSODIAL [Concomitant]
  5. POSACONAZOLE [Concomitant]
     Active Substance: POSACONAZOLE
  6. PANTOPRAZOLE [Concomitant]
     Active Substance: PANTOPRAZOLE
  7. VALACYCLOVIR [Concomitant]
     Active Substance: VALACYCLOVIR HYDROCHLORIDE

REACTIONS (1)
  - Atrial fibrillation [None]

NARRATIVE: CASE EVENT DATE: 20231022
